FAERS Safety Report 9801150 (Version 1)
Quarter: 2014Q1

REPORT INFORMATION
  Report Type: Spontaneous
  Country: CL (occurrence: CL)
  Receive Date: 20140107
  Receipt Date: 20140107
  Transmission Date: 20141002
  Serious: Yes (Other)
  Sender: FDA-Public Use
  Company Number: CL-PFIZER INC-2014000591

PATIENT
  Age: 77 Year
  Sex: Female

DRUGS (2)
  1. XALATAN [Suspect]
     Indication: GLAUCOMA
     Dosage: 1 DROP PER EYE AT NIGHT
     Route: 047
     Dates: start: 2003
  2. ATENOLOL [Concomitant]
     Dosage: IN THE MORNING

REACTIONS (5)
  - Deafness unilateral [Not Recovered/Not Resolved]
  - Blindness unilateral [Not Recovered/Not Resolved]
  - Hypoacusis [Not Recovered/Not Resolved]
  - Cataract [Not Recovered/Not Resolved]
  - Retinal disorder [Not Recovered/Not Resolved]
